FAERS Safety Report 4844365-5 (Version None)
Quarter: 2005Q4

REPORT INFORMATION
  Report Type: 
  Country: None (occurrence: None)
  Receive Date: 20051202
  Receipt Date: 20051005
  Transmission Date: 20060501
  Serious: Yes (Hospitalization, Other)
  Sender: FDA-Public Use
  Company Number: US-MERCK-0510USA04220

PATIENT
  Age: 59 Year
  Sex: Female
  Weight: 70 kg

DRUGS (3)
  1. VIOXX [Suspect]
     Indication: ARTHRALGIA
     Route: 048
     Dates: start: 20001101, end: 20030101
  2. VIOXX [Suspect]
     Indication: HIP SWELLING
     Route: 048
     Dates: start: 20001101, end: 20030101
  3. PREMARIN [Concomitant]
     Route: 065

REACTIONS (4)
  - CONVULSION [None]
  - ISCHAEMIC STROKE [None]
  - JOINT INJURY [None]
  - OVERDOSE [None]
